FAERS Safety Report 9006018 (Version 2)
Quarter: 2013Q1

REPORT INFORMATION
  Report Type: Spontaneous
  Country: AU (occurrence: AU)
  Receive Date: 20130109
  Receipt Date: 20130114
  Transmission Date: 20140127
  Serious: Yes (Death)
  Sender: FDA-Public Use
  Company Number: PHHY2013AU001840

PATIENT
  Sex: Male

DRUGS (1)
  1. ACLASTA [Suspect]
     Dosage: 5 MG INTRAVENOUSLY
     Route: 042
     Dates: start: 20120206

REACTIONS (2)
  - Pneumonia [Fatal]
  - Lower respiratory tract infection [Fatal]
